FAERS Safety Report 12971853 (Version 1)
Quarter: 2016Q4

REPORT INFORMATION
  Report Type: Spontaneous
  Country: IT (occurrence: IT)
  Receive Date: 20161124
  Receipt Date: 20161124
  Transmission Date: 20170207
  Serious: Yes (Hospitalization)
  Sender: FDA-Public Use
  Company Number: IT-ROCHE-1858116

PATIENT
  Age: 50 Year
  Sex: Female
  Weight: 60 kg

DRUGS (5)
  1. PERJETA [Suspect]
     Active Substance: PERTUZUMAB
     Indication: HER-2 POSITIVE BREAST CANCER
     Dosage: 420 MG VIAL (GLASS) - 30 MG/ML - 1 VIAL, CONCENTRATE FOR SOLUTION FOR INTRAVENOUS INFUSION
     Route: 042
     Dates: start: 20160926
  2. METFORMIN [Concomitant]
     Active Substance: METFORMIN HYDROCHLORIDE
     Indication: DIABETES MELLITUS
     Route: 065
  3. HERCEPTIN [Suspect]
     Active Substance: TRASTUZUMAB
     Indication: HER-2 POSITIVE BREAST CANCER
     Dosage: 150 MG 1 VIAL, POWDER FOR SOLUTION FOR INTRAVENOUS INFUSION
     Route: 042
     Dates: start: 20160926
  4. DOCETAXEL HOSPIRA [Suspect]
     Active Substance: DOCETAXEL
     Indication: HER-2 POSITIVE BREAST CANCER
     Dosage: 10 MG/ML 1 GLASS VIAL CONTAINING 16 ML
     Route: 042
     Dates: start: 20160926
  5. LANTUS [Concomitant]
     Active Substance: INSULIN GLARGINE
     Indication: DIABETES MELLITUS

REACTIONS (6)
  - Abdominal pain upper [Recovering/Resolving]
  - Dysphagia [Recovering/Resolving]
  - Odynophagia [Recovering/Resolving]
  - Stomatitis [Recovering/Resolving]
  - Weight decreased [Recovering/Resolving]
  - Hyperpyrexia [Recovering/Resolving]

NARRATIVE: CASE EVENT DATE: 20161026
